FAERS Safety Report 20749637 (Version 4)
Quarter: 2022Q2

REPORT INFORMATION
  Report Type: Report from Study
  Country: DE (occurrence: DE)
  Receive Date: 20220426
  Receipt Date: 20220630
  Transmission Date: 20220721
  Serious: Yes (Hospitalization, Other)
  Sender: FDA-Public Use
  Company Number: DE-TAKEDA-DE201814065

PATIENT
  Age: 82 Year
  Sex: Female
  Weight: 79 kg

DRUGS (51)
  1. TEDUGLUTIDE [Suspect]
     Active Substance: TEDUGLUTIDE
     Indication: Short-bowel syndrome
     Dosage: 4 MILLIGRAM, QD
     Route: 042
     Dates: start: 20141022, end: 201802
  2. TEDUGLUTIDE [Suspect]
     Active Substance: TEDUGLUTIDE
     Indication: Short-bowel syndrome
     Dosage: 4 MILLIGRAM, QD
     Route: 042
     Dates: start: 20141022, end: 201802
  3. TEDUGLUTIDE [Suspect]
     Active Substance: TEDUGLUTIDE
     Indication: Short-bowel syndrome
     Dosage: 4 MILLIGRAM, QD
     Route: 042
     Dates: start: 20141022, end: 201802
  4. TEDUGLUTIDE [Suspect]
     Active Substance: TEDUGLUTIDE
     Indication: Short-bowel syndrome
     Dosage: 4 MILLIGRAM, QD
     Route: 042
     Dates: start: 20141022, end: 201802
  5. TEDUGLUTIDE [Suspect]
     Active Substance: TEDUGLUTIDE
     Dosage: 2 MILLIGRAM, QD
     Route: 042
     Dates: start: 201802, end: 20180523
  6. TEDUGLUTIDE [Suspect]
     Active Substance: TEDUGLUTIDE
     Dosage: 2 MILLIGRAM, QD
     Route: 042
     Dates: start: 201802, end: 20180523
  7. TEDUGLUTIDE [Suspect]
     Active Substance: TEDUGLUTIDE
     Dosage: 2 MILLIGRAM, QD
     Route: 042
     Dates: start: 201802, end: 20180523
  8. TEDUGLUTIDE [Suspect]
     Active Substance: TEDUGLUTIDE
     Dosage: 2 MILLIGRAM, QD
     Route: 042
     Dates: start: 201802, end: 20180523
  9. TEDUGLUTIDE [Suspect]
     Active Substance: TEDUGLUTIDE
     Dosage: 999 MILLIGRAM, QD
     Route: 042
     Dates: start: 20180523
  10. TEDUGLUTIDE [Suspect]
     Active Substance: TEDUGLUTIDE
     Dosage: 999 MILLIGRAM, QD
     Route: 042
     Dates: start: 20180523
  11. TEDUGLUTIDE [Suspect]
     Active Substance: TEDUGLUTIDE
     Dosage: 999 MILLIGRAM, QD
     Route: 042
     Dates: start: 20180523
  12. TEDUGLUTIDE [Suspect]
     Active Substance: TEDUGLUTIDE
     Dosage: 999 MILLIGRAM, QD
     Route: 042
     Dates: start: 20180523
  13. PANTOPRAZOLE SODIUM [Concomitant]
     Active Substance: PANTOPRAZOLE SODIUM
     Indication: Hyperchlorhydria
     Dosage: 40 MILLIGRAM, BID
     Route: 048
     Dates: start: 2004, end: 201803
  14. CHOLECALCIFEROL [Concomitant]
     Active Substance: CHOLECALCIFEROL
     Indication: Vitamin D deficiency
  15. APIXABAN [Concomitant]
     Active Substance: APIXABAN
     Indication: Atrial fibrillation
  16. FOLIC ACID [Concomitant]
     Active Substance: FOLIC ACID
     Indication: Anaemia macrocytic
  17. DEVIT [Concomitant]
     Indication: Vitamin D deficiency
     Dosage: 0.06 MILLIGRAM, QD
     Route: 048
     Dates: start: 202001
  18. MAGNO SANOL UNO [Concomitant]
     Indication: Magnesium deficiency
     Dosage: 150 MILLIGRAM, TID
     Route: 048
     Dates: start: 20200115
  19. FOSFOMYCIN [Concomitant]
     Active Substance: FOSFOMYCIN
     Indication: Urinary tract infection
     Dosage: UNK
     Route: 065
     Dates: start: 201905, end: 201905
  20. MAGNESIUM [Concomitant]
     Active Substance: MAGNESIUM
     Indication: Magnesium deficiency
     Dosage: 122 MILLIGRAM
     Route: 048
     Dates: end: 2020
  21. CALCIMAGON D3 UNO [Concomitant]
     Indication: Mineral supplementation
     Dosage: 999 MILLIGRAM, BID
     Route: 048
     Dates: start: 2004, end: 2017
  22. CALCIMAGON D3 UNO [Concomitant]
     Indication: Blood calcium decreased
     Dosage: 999 MILLIGRAM, BID
     Route: 048
     Dates: start: 2017, end: 201710
  23. CALCIMAGON D3 UNO [Concomitant]
     Indication: Vitamin supplementation
     Dosage: 999 MILLIGRAM, BID
     Route: 048
     Dates: start: 201710, end: 2019
  24. Selenase [Concomitant]
     Indication: Supplementation therapy
     Dosage: 0.10 MILLIGRAM, QD
     Route: 048
  25. POTASSIUM CHLORIDE [Concomitant]
     Active Substance: POTASSIUM CHLORIDE
     Indication: Supplementation therapy
     Dosage: 780 MILLIGRAM, QD
     Route: 048
     Dates: end: 2020
  26. TORSEMIDE [Concomitant]
     Active Substance: TORSEMIDE
     Indication: Hypertension
     Dosage: 10 MILLIGRAM, BID
     Route: 048
     Dates: start: 201205
  27. AMLODIPINE [Concomitant]
     Active Substance: AMLODIPINE BESYLATE
     Indication: Hypertension
     Dosage: 5 MILLIGRAM
     Route: 048
     Dates: start: 201205, end: 2017
  28. LOPERAMIDE [Concomitant]
     Active Substance: LOPERAMIDE
     Indication: Diarrhoea
     Dosage: UNK
     Route: 048
     Dates: start: 2014, end: 201501
  29. LOPERAMIDE [Concomitant]
     Active Substance: LOPERAMIDE
     Dosage: 2 MILLIGRAM
     Route: 048
     Dates: start: 201501, end: 201505
  30. LOPERAMIDE [Concomitant]
     Active Substance: LOPERAMIDE
     Dosage: 2 MILLIGRAM
     Route: 048
     Dates: start: 201805
  31. Nac [Concomitant]
     Indication: Chronic obstructive pulmonary disease
     Dosage: 600 MILLIGRAM
     Route: 065
     Dates: start: 201709, end: 201810
  32. ELIQUIS [Concomitant]
     Active Substance: APIXABAN
     Indication: Anticoagulant therapy
     Dosage: 5 MILLIGRAM, BID
     Route: 048
     Dates: start: 201708
  33. BISOPROLOL FUMARATE\HYDROCHLOROTHIAZIDE [Concomitant]
     Active Substance: BISOPROLOL FUMARATE\HYDROCHLOROTHIAZIDE
     Indication: Hypertension
     Dosage: 2.5 MILLIGRAM, QD
     Route: 048
     Dates: start: 201710
  34. SIMVASTATIN [Concomitant]
     Active Substance: SIMVASTATIN
     Indication: Hypercholesterolaemia
     Dosage: 20 MILLIGRAM, QD
     Route: 048
     Dates: start: 201710
  35. PREDNISOLONE [Concomitant]
     Active Substance: PREDNISOLONE
     Indication: Chronic obstructive pulmonary disease
     Dosage: 10 MILLIGRAM, QOD
     Route: 048
     Dates: start: 2017, end: 2017
  36. FUROSEMIDE [Concomitant]
     Active Substance: FUROSEMIDE
     Indication: Cardiac failure acute
     Dosage: UNK
     Route: 042
     Dates: start: 201801, end: 201801
  37. POTASSIUM [Concomitant]
     Active Substance: POTASSIUM
     Indication: Hypokalaemia
     Dosage: UNK
     Route: 065
     Dates: start: 201801, end: 201801
  38. COTRIM [Concomitant]
     Active Substance: SULFAMETHOXAZOLE\TRIMETHOPRIM
     Indication: Urinary tract infection
     Dosage: UNK
     Route: 065
     Dates: start: 201801, end: 201801
  39. CALCIUM CARBONATE [Concomitant]
     Active Substance: CALCIUM CARBONATE
     Indication: Mineral supplementation
     Dosage: 250 MILLIGRAM, TID
     Route: 048
     Dates: end: 2020
  40. TILIDINE [Concomitant]
     Active Substance: TILIDINE
     Indication: Spinal column injury
     Dosage: 100 MILLIGRAM, BID
     Route: 048
     Dates: start: 201712, end: 2018
  41. TILIDINE [Concomitant]
     Active Substance: TILIDINE
     Indication: Fracture
  42. CEFUROXIME [Concomitant]
     Active Substance: CEFUROXIME
     Dosage: UNK
     Route: 042
     Dates: start: 201712
  43. CEFUROXIME [Concomitant]
     Active Substance: CEFUROXIME
     Dosage: 500 MILLIGRAM, BID
     Route: 048
     Dates: start: 20171130, end: 201712
  44. RAMIPRIL [Concomitant]
     Active Substance: RAMIPRIL
     Indication: Hypertension
     Dosage: 5 MILLIGRAM
     Route: 048
     Dates: end: 201810
  45. AMLODIPINE BESYLATE\OLMESARTAN MEDOXOMIL [Concomitant]
     Active Substance: AMLODIPINE BESYLATE\OLMESARTAN MEDOXOMIL
     Indication: Hypertension
     Dosage: 5 MILLIGRAM
     Route: 065
     Dates: end: 201810
  46. ESCITALOPRAM [Concomitant]
     Active Substance: ESCITALOPRAM OXALATE
     Indication: Depression
     Dosage: UNK
     Route: 065
  47. L TYROSIN [Concomitant]
     Indication: Hypothyroidism
     Dosage: UNK
     Route: 065
     Dates: end: 201810
  48. METAMIZOL [Concomitant]
     Active Substance: METAMIZOLE SODIUM
     Indication: Osteopetrosis
     Dosage: UNK
     Route: 048
  49. ASPIRIN [Concomitant]
     Active Substance: ASPIRIN
     Dosage: 100 MILLIGRAM, QD
     Route: 048
     Dates: start: 201903
  50. Calcimed dm [Concomitant]
     Indication: Mineral supplementation
     Dosage: 1250 MILLIGRAM, TID
     Route: 048
     Dates: start: 20190309
  51. Calcimed dm [Concomitant]
     Indication: Vitamin supplementation
     Dosage: 0.03 MILLIGRAM, TID
     Route: 048
     Dates: start: 20190309

REACTIONS (1)
  - Erysipelas [Recovered/Resolved]

NARRATIVE: CASE EVENT DATE: 20171216
